FAERS Safety Report 6665296-4 (Version None)
Quarter: 2010Q1

REPORT INFORMATION
  Report Type: 
  Country: None (occurrence: None)
  Receive Date: 20100331
  Receipt Date: 20100324
  Transmission Date: 20100710
  Serious: Yes (Other)
  Sender: FDA-Public Use
  Company Number: RB-05613-2010

PATIENT
  Age: 59 Year
  Sex: Female

DRUGS (3)
  1. MUCINEX [Suspect]
     Indication: BRONCHITIS
     Dosage: 600 MG BID TOOK TWO TABLETS ONCE A DAY FOR 2 WEEKS ORAL
     Route: 048
     Dates: start: 20100301
  2. MUCINEX [Suspect]
     Indication: SINUSITIS
     Dosage: 600 MG BID TOOK TWO TABLETS ONCE A DAY FOR 2 WEEKS ORAL
     Route: 048
     Dates: start: 20100301
  3. ADVAIR DISKUS 100/50 [Concomitant]

REACTIONS (1)
  - PSYCHOMOTOR HYPERACTIVITY [None]
